FAERS Safety Report 7842450-7 (Version None)
Quarter: 2011Q4

REPORT INFORMATION
  Report Type: 
  Country: None (occurrence: None)
  Receive Date: 20111025
  Receipt Date: 20111014
  Transmission Date: 20120403
  Serious: Yes (Hospitalization, Disabling, Other)
  Sender: FDA-Public Use
  Company Number: PHEH2011US05539

PATIENT
  Sex: Female
  Weight: 75.9 kg

DRUGS (8)
  1. AGGRENOX [Concomitant]
     Dosage: BID
  2. RED BLOOD CELLS [Concomitant]
  3. RECLAST [Suspect]
     Indication: OSTEOPOROSIS
     Dosage: 5 MG/100ML
     Route: 042
     Dates: start: 20110718
  4. PREDNISONE [Concomitant]
     Dosage: 60 MG, UNK
  5. LEVOTHYROXINE SODIUM [Concomitant]
     Dosage: 100 UG, QD
  6. HYDROCHLOROTHIAZIDE [Concomitant]
     Dates: start: 20110601
  7. PRAVASTATIN [Concomitant]
     Dosage: 40 MG, QD
  8. NIASPAN [Concomitant]
     Dosage: 500 MG, QD

REACTIONS (27)
  - ACUTE PRERENAL FAILURE [None]
  - OESOPHAGEAL MASS [None]
  - OESOPHAGEAL POLYP [None]
  - ACIDOSIS [None]
  - ELECTROCARDIOGRAM T WAVE INVERSION [None]
  - ANAEMIA [None]
  - VAGINITIS BACTERIAL [None]
  - VULVOVAGINAL PRURITUS [None]
  - CEREBROVASCULAR ACCIDENT [None]
  - TUBULOINTERSTITIAL NEPHRITIS [None]
  - RENAL FAILURE ACUTE [None]
  - NEPHROLITHIASIS [None]
  - ASTHENIA [None]
  - MONOCLONAL GAMMOPATHY [None]
  - RENAL TUBULAR NECROSIS [None]
  - DYSLIPIDAEMIA [None]
  - FATIGUE [None]
  - RENAL FAILURE [None]
  - BLOOD GLUCOSE INCREASED [None]
  - URINARY TRACT INFECTION [None]
  - TOBACCO ABUSE [None]
  - HYPOKALAEMIA [None]
  - OSTEOARTHRITIS [None]
  - MULTIPLE MYELOMA [None]
  - HYPERTENSION [None]
  - HYPOTHYROIDISM [None]
  - DECREASED APPETITE [None]
